FAERS Safety Report 24641611 (Version 1)
Quarter: 2024Q4

REPORT INFORMATION
  Report Type: Spontaneous
  Country: US (occurrence: US)
  Receive Date: 20241120
  Receipt Date: 20241120
  Transmission Date: 20250115
  Serious: Yes (Hospitalization, Other)
  Sender: SANOFI AVENTIS
  Company Number: US-SA-2024SA332320

PATIENT
  Age: 62 Year
  Sex: Female

DRUGS (51)
  1. DUPIXENT [Suspect]
     Active Substance: DUPILUMAB
     Indication: Spinal osteoarthritis
     Dosage: 300 MG, QOW
     Route: 058
  2. OLANZAPINE [Concomitant]
     Active Substance: OLANZAPINE
  3. DILAUDID [Concomitant]
     Active Substance: HYDROMORPHONE HYDROCHLORIDE
     Dosage: UNK
  4. OXCARBAZEPINE [Concomitant]
     Active Substance: OXCARBAZEPINE
     Dosage: UNK
  5. AMANTADINE HYDROCHLORIDE [Concomitant]
     Active Substance: AMANTADINE HYDROCHLORIDE
     Dosage: UNK
  6. WELLBUTRIN SR [Concomitant]
     Active Substance: BUPROPION HYDROCHLORIDE
     Dosage: UNK
  7. SPIRONOLACTONE [Concomitant]
     Active Substance: SPIRONOLACTONE
  8. AMLODIPINE BESYLATE [Concomitant]
     Active Substance: AMLODIPINE BESYLATE
  9. TRAMADOL HCL [Concomitant]
     Active Substance: TRAMADOL HYDROCHLORIDE
  10. VALACYCLOVIR [Concomitant]
     Active Substance: VALACYCLOVIR HYDROCHLORIDE
  11. VERAPAMIL HCL [Concomitant]
     Active Substance: VERAPAMIL HYDROCHLORIDE
  12. CEVIMELINE HYDROCHLORIDE [Concomitant]
     Active Substance: CEVIMELINE HYDROCHLORIDE
  13. PROLIA [Concomitant]
     Active Substance: DENOSUMAB
  14. PREDNISONE [Concomitant]
     Active Substance: PREDNISONE
  15. TERBINAFINE [Concomitant]
     Active Substance: TERBINAFINE\TERBINAFINE HYDROCHLORIDE
  16. PRISTIQ EXTENDED-RELEASE [Concomitant]
     Active Substance: DESVENLAFAXINE SUCCINATE
  17. ALPRAZOLAM [Concomitant]
     Active Substance: ALPRAZOLAM
  18. OMEPRAZOLE [Concomitant]
     Active Substance: OMEPRAZOLE
  19. OXYCODONE AND ACETAMINOPHEN [Concomitant]
     Active Substance: ACETAMINOPHEN\OXYCODONE HYDROCHLORIDE
  20. LANSOPRAZOLE [Concomitant]
     Active Substance: LANSOPRAZOLE
  21. CEVIMELINE HYDROCHLORIDE [Concomitant]
     Active Substance: CEVIMELINE HYDROCHLORIDE
  22. HYDROMORPHONE HCL [Concomitant]
     Active Substance: HYDROMORPHONE HYDROCHLORIDE
  23. LEVOFLOXACIN [Concomitant]
     Active Substance: LEVOFLOXACIN
  24. METHOCARBAMOL [Concomitant]
     Active Substance: METHOCARBAMOL
  25. ONDANSETRON [Concomitant]
     Active Substance: ONDANSETRON
  26. CLOBETASOL PROPIONATE [Concomitant]
     Active Substance: CLOBETASOL PROPIONATE
  27. PHENAZOPYRIDINE HCL [Concomitant]
     Active Substance: PHENAZOPYRIDINE HYDROCHLORIDE
  28. NITROFURANTOIN MONOHYDRATE MACROCRYSTALS [Concomitant]
     Active Substance: NITROFURANTOIN\NITROFURANTOIN MONOHYDRATE
  29. HEPARIN LOCK FLUSH [Concomitant]
     Active Substance: HEPARIN SODIUM
  30. SODIUM CHLORIDE [Concomitant]
     Active Substance: SODIUM CHLORIDE
  31. VANCOMYCIN HYDROCHLORIDE [Concomitant]
     Active Substance: VANCOMYCIN HYDROCHLORIDE
  32. DEXAMETHASONE [Concomitant]
     Active Substance: DEXAMETHASONE
  33. STERILE WATER [Concomitant]
     Active Substance: WATER
  34. ENOXAPARIN SODIUM [Concomitant]
     Active Substance: ENOXAPARIN SODIUM
  35. CEFUROXIME AXETIL [Concomitant]
     Active Substance: CEFUROXIME AXETIL
  36. FLUCONAZOLE [Concomitant]
     Active Substance: FLUCONAZOLE
  37. METOCLOPRAMIDE HYDROCHLORIDE [Concomitant]
     Active Substance: METOCLOPRAMIDE HYDROCHLORIDE
  38. CEPHALEXIN [Concomitant]
     Active Substance: CEPHALEXIN
  39. IBUPROFEN [Concomitant]
     Active Substance: IBUPROFEN
  40. ACETAMINOPHEN\HYDROCODONE [Concomitant]
     Active Substance: ACETAMINOPHEN\HYDROCODONE
  41. AFLURIA NOS [Concomitant]
     Active Substance: INFLUENZA VIRUS VACCINE TRIVALENT TYPE A+B AFLURIA
  42. ATENOLOL [Concomitant]
     Active Substance: ATENOLOL
  43. LIDOCAINE\PRILOCAINE [Concomitant]
     Active Substance: LIDOCAINE\PRILOCAINE
  44. NYSTATIN [Concomitant]
     Active Substance: NYSTATIN
  45. ONDANSETRON HYDROCHLORIDE [Concomitant]
     Active Substance: ONDANSETRON HYDROCHLORIDE
  46. PROCHLORPERAZINE MALEATE [Concomitant]
     Active Substance: PROCHLORPERAZINE MALEATE
  47. LUNESTA [Concomitant]
     Active Substance: ESZOPICLONE
  48. SAVELLA [Concomitant]
     Active Substance: MILNACIPRAN HYDROCHLORIDE
  49. TOPIRAMATE [Concomitant]
     Active Substance: TOPIRAMATE
  50. RESTASIS [Concomitant]
     Active Substance: CYCLOSPORINE
  51. VERAPAMIL HCL [Concomitant]
     Active Substance: VERAPAMIL HYDROCHLORIDE

REACTIONS (6)
  - Pneumonia [Not Recovered/Not Resolved]
  - Dry skin [Not Recovered/Not Resolved]
  - Poor peripheral circulation [Not Recovered/Not Resolved]
  - Skin exfoliation [Not Recovered/Not Resolved]
  - Back pain [Not Recovered/Not Resolved]
  - Product use in unapproved indication [Unknown]

NARRATIVE: CASE EVENT DATE: 20241101
